FAERS Safety Report 15275815 (Version 1)
Quarter: 2018Q3

REPORT INFORMATION
  Report Type: Report from Study
  Country: ES (occurrence: ES)
  Receive Date: 20180814
  Receipt Date: 20180814
  Transmission Date: 20181010
  Serious: Yes (Hospitalization)
  Sender: FDA-Public Use
  Company Number: ES-TEVA-2018-ES-939200

PATIENT
  Age: 69 Year
  Sex: Female
  Weight: 60 kg

DRUGS (13)
  1. ENALAPRIL [Concomitant]
     Active Substance: ENALAPRIL
     Indication: HYPERTENSION
     Route: 048
  2. LEUCOVORIN. [Suspect]
     Active Substance: LEUCOVORIN
     Indication: RECTAL CANCER
     Route: 042
     Dates: start: 20160812, end: 20160812
  3. OXALIPLATIN. [Suspect]
     Active Substance: OXALIPLATIN
     Route: 042
     Dates: start: 20160919, end: 20160919
  4. 5?FU [Suspect]
     Active Substance: FLUOROURACIL
     Indication: RECTAL CANCER
     Route: 042
     Dates: start: 20160919, end: 20160919
  5. AFLIBERCEPT [Suspect]
     Active Substance: AFLIBERCEPT
     Route: 042
     Dates: start: 20160715, end: 20160715
  6. OXALIPLATIN. [Suspect]
     Active Substance: OXALIPLATIN
     Indication: RECTAL CANCER
     Dates: start: 20160812, end: 20160812
  7. 5?FU [Suspect]
     Active Substance: FLUOROURACIL
     Route: 040
     Dates: start: 20160812, end: 20160812
  8. AFLIBERCEPT [Suspect]
     Active Substance: AFLIBERCEPT
     Indication: RECTAL CANCER
     Route: 042
     Dates: start: 20160812, end: 20160812
  9. 5?FU [Suspect]
     Active Substance: FLUOROURACIL
     Route: 042
     Dates: start: 20160814, end: 20160814
  10. LEUCOVORIN. [Suspect]
     Active Substance: LEUCOVORIN
     Route: 042
     Dates: start: 20160919, end: 20160919
  11. LEUCOVORIN. [Suspect]
     Active Substance: LEUCOVORIN
     Route: 042
     Dates: start: 20160715, end: 20160715
  12. 5?FU [Suspect]
     Active Substance: FLUOROURACIL
     Route: 040
     Dates: start: 20160715, end: 20160715
  13. CAPECITABINE. [Suspect]
     Active Substance: CAPECITABINE
     Route: 065

REACTIONS (1)
  - Colitis [Recovered/Resolved]

NARRATIVE: CASE EVENT DATE: 20160819
